FAERS Safety Report 4494047-7 (Version None)
Quarter: 2004Q4

REPORT INFORMATION
  Report Type: 
  Country: None (occurrence: None)
  Receive Date: 20041105
  Receipt Date: 20041028
  Transmission Date: 20050328
  Serious: Yes (Other)
  Sender: FDA-Public Use
  Company Number: US-JNJFOC-20041100032

PATIENT
  Sex: Female
  Weight: 72.12 kg

DRUGS (12)
  1. REMICADE [Suspect]
     Route: 042
  2. REMICADE [Suspect]
     Indication: RHEUMATOID ARTHRITIS
     Route: 042
  3. PLAQUENIL [Concomitant]
  4. CELCEPT [Concomitant]
  5. CELCEPT [Concomitant]
  6. CELCEPT [Concomitant]
  7. CELCEPT [Concomitant]
  8. LASIX [Concomitant]
  9. PROTONIX [Concomitant]
  10. ASPIRIN [Concomitant]
  11. PREMARIN [Concomitant]
  12. SINEQUAN [Concomitant]

REACTIONS (2)
  - LIVER FUNCTION TEST ABNORMAL [None]
  - NON-HODGKIN'S LYMPHOMA [None]
